FAERS Safety Report 7074220-4 (Version None)
Quarter: 2010Q4

REPORT INFORMATION
  Report Type: 
  Country: None (occurrence: None)
  Receive Date: 20101029
  Receipt Date: 20100326
  Transmission Date: 20110411
  Serious: Yes (Other)
  Sender: FDA-Public Use
  Company Number: A0837086A

PATIENT
  Sex: Male

DRUGS (3)
  1. ADVAIR DISKUS 100/50 [Suspect]
     Indication: ASTHMA
     Dosage: 1PUFF TWICE PER DAY
     Route: 055
     Dates: start: 19940101
  2. THEOPHYLLINE [Concomitant]
  3. ACCOLATE [Concomitant]

REACTIONS (3)
  - CHOKING [None]
  - DYSPNOEA [None]
  - PRODUCT QUALITY ISSUE [None]
